FAERS Safety Report 9189281 (Version 1)
Quarter: 2013Q1

REPORT INFORMATION
  Report Type: Spontaneous
  Country: US (occurrence: None)
  Receive Date: 20130321
  Receipt Date: 20130321
  Transmission Date: 20140127
  Serious: Yes (Hospitalization)
  Sender: FDA-Public Use
  Company Number: None

PATIENT
  Age: 32 Year
  Sex: Male
  Weight: 98.3 kg

DRUGS (1)
  1. SERTRALINE [Suspect]
     Indication: DEPRESSION
     Dosage: 25 MG  EVERY DAY PO
     Route: 048
     Dates: start: 20121005, end: 20121022

REACTIONS (9)
  - Neck pain [None]
  - Arthralgia [None]
  - Pain [None]
  - Muscular weakness [None]
  - Gait disturbance [None]
  - Gait disturbance [None]
  - Myalgia [None]
  - Toxicity to various agents [None]
  - Serotonin syndrome [None]
